FAERS Safety Report 8482000-8 (Version None)
Quarter: 2012Q3

REPORT INFORMATION
  Report Type: 
  Country: None (occurrence: None)
  Receive Date: 20120702
  Receipt Date: 20120626
  Transmission Date: 20120928
  Serious: Yes (Hospitalization, Disabling, Other)
  Sender: FDA-Public Use
  Company Number: PHEH2012US011661

PATIENT
  Sex: Female
  Weight: 71 kg

DRUGS (5)
  1. ZOLOFT [Concomitant]
     Indication: DEPRESSION
     Dosage: 100 MG, QD
     Route: 048
     Dates: start: 20060201
  2. GILENYA [Suspect]
     Indication: MULTIPLE SCLEROSIS
     Dosage: 0.5 MG, QD
     Route: 048
     Dates: start: 20111017, end: 20120601
  3. TRILEPTAL [Concomitant]
     Indication: FACIAL SPASM
     Dosage: 450 MG, BID
     Route: 048
     Dates: start: 20120116
  4. NEXIUM [Concomitant]
     Indication: GASTROOESOPHAGEAL REFLUX DISEASE
     Dates: start: 20060201
  5. NEURONTIN [Concomitant]
     Indication: PAIN
     Dosage: 400 MG, TID
     Route: 048
     Dates: start: 20060201

REACTIONS (2)
  - OVARIAN MASS [None]
  - THYROID CANCER [None]
